FAERS Safety Report 8317094-3 (Version None)
Quarter: 2012Q2

REPORT INFORMATION
  Report Type: 
  Country: None (occurrence: None)
  Receive Date: 20120427
  Receipt Date: 20120417
  Transmission Date: 20120825
  Serious: Yes (Hospitalization)
  Sender: FDA-Public Use
  Company Number: DE-US-EMD SERONO, INC.-7126997

PATIENT
  Sex: Male
  Weight: 14.7 kg

DRUGS (4)
  1. CREON [Concomitant]
     Indication: PANCREATIC INSUFFICIENCY
     Route: 048
     Dates: start: 20100706
  2. VIANI MITE [Concomitant]
     Indication: BRONCHITIS CHRONIC
     Dates: start: 20110727
  3. SAIZEN [Suspect]
     Indication: GROWTH HORMONE DEFICIENCY
     Route: 058
     Dates: start: 20111122, end: 20120207
  4. SAIZEN [Suspect]
     Route: 058
     Dates: start: 20120312

REACTIONS (2)
  - FUNGAL INFECTION [None]
  - DERMATOSIS [None]
